FAERS Safety Report 11253640 (Version 2)
Quarter: 2015Q3

REPORT INFORMATION
  Report Type: Spontaneous
  Country: US (occurrence: US)
  Receive Date: 20150709
  Receipt Date: 20150813
  Transmission Date: 20151125
  Serious: Yes (Hospitalization, Other)
  Sender: FDA-Public Use
  Company Number: US-MALLINCKRODT-T201503247

PATIENT
  Age: 39 Year
  Sex: Female
  Weight: 68 kg

DRUGS (3)
  1. GABLOFEN [Suspect]
     Active Substance: BACLOFEN
     Indication: MUSCLE SPASTICITY
     Dosage: 571 ?G/DAY
     Route: 037
  2. GABLOFEN [Suspect]
     Active Substance: BACLOFEN
     Dosage: 588 MCG/DAY, CONTINUOUS
     Route: 037
  3. BACLOFEN. [Concomitant]
     Active Substance: BACLOFEN
     Dosage: 20 MG, QID
     Route: 048

REACTIONS (8)
  - Osteomyelitis [Not Recovered/Not Resolved]
  - Sepsis [Not Recovered/Not Resolved]
  - Weight increased [Not Recovered/Not Resolved]
  - Hypotension [Not Recovered/Not Resolved]
  - Hypothermia [Not Recovered/Not Resolved]
  - Drug administration error [Not Recovered/Not Resolved]
  - Unresponsive to stimuli [Recovering/Resolving]
  - Urinary tract infection [Not Recovered/Not Resolved]

NARRATIVE: CASE EVENT DATE: 20150624
